FAERS Safety Report 4954167-7 (Version None)
Quarter: 2006Q1

REPORT INFORMATION
  Report Type: 
  Country: None (occurrence: None)
  Receive Date: 20060323
  Receipt Date: 20060323
  Transmission Date: 20060701
  Serious: Yes (Hospitalization, Other)
  Sender: FDA-Public Use
  Company Number: None

PATIENT
  Sex: Female
  Weight: 68.6 kg

DRUGS (2)
  1. CISPLATIN [Suspect]
     Indication: SMALL CELL LUNG CANCER STAGE UNSPECIFIED
     Dosage: 105 MG
     Dates: start: 20060306, end: 20060306
  2. ETOPOSIDE [Suspect]
     Dosage: 630 MG
     Dates: start: 20060306, end: 20060308

REACTIONS (3)
  - CHILLS [None]
  - FATIGUE [None]
  - FEBRILE NEUTROPENIA [None]
